FAERS Safety Report 7252100-9 (Version None)
Quarter: 2011Q1

REPORT INFORMATION
  Report Type: 
  Country: None (occurrence: None)
  Receive Date: 20110128
  Receipt Date: 20100429
  Transmission Date: 20110831
  Serious: No
  Sender: FDA-Public Use
  Company Number: US-ABBOTT-10P-163-0641959-00

PATIENT
  Sex: Female
  Weight: 54.48 kg

DRUGS (2)
  1. GEODON [Concomitant]
     Indication: MAJOR DEPRESSION
  2. HUMIRA [Suspect]
     Indication: CROHN'S DISEASE
     Dosage: WAS OFF BECAUSE SHE FELL TWICE
     Dates: start: 20091201

REACTIONS (6)
  - COUGH [None]
  - CONTUSION [None]
  - NASAL CONGESTION [None]
  - FALL [None]
  - EXCORIATION [None]
  - NASOPHARYNGITIS [None]
